FAERS Safety Report 6354720-2 (Version None)
Quarter: 2009Q3

REPORT INFORMATION
  Report Type: 
  Country: None (occurrence: None)
  Receive Date: 20090914
  Receipt Date: 20090910
  Transmission Date: 20100115
  Serious: Yes (Death, Hospitalization)
  Sender: FDA-Public Use
  Company Number: ES-ASTRAZENECA-2009SE11816

PATIENT
  Age: 19 Year
  Sex: Female
  Weight: 75 kg

DRUGS (4)
  1. QUETIAPINE [Suspect]
     Route: 048
  2. TOPIRAMATE [Suspect]
     Route: 048
  3. TOPIRAMATE [Suspect]
     Route: 048
  4. VENLAFAXINE HCL [Suspect]
     Route: 048

REACTIONS (10)
  - ANOXIA [None]
  - BRAIN OEDEMA [None]
  - CARDIOPULMONARY FAILURE [None]
  - CONVULSION [None]
  - GRAND MAL CONVULSION [None]
  - METABOLIC ACIDOSIS [None]
  - MULTIPLE DRUG OVERDOSE [None]
  - NOSOCOMIAL INFECTION [None]
  - RHABDOMYOLYSIS [None]
  - SINUS TACHYCARDIA [None]
